FAERS Safety Report 5067723-5 (Version None)
Quarter: 2006Q3

REPORT INFORMATION
  Report Type: 
  Country: None (occurrence: None)
  Receive Date: 20060728
  Receipt Date: 20060713
  Transmission Date: 20061208
  Serious: Yes (Hospitalization)
  Sender: FDA-Public Use
  Company Number: US200606005040

PATIENT
  Age: 82 Year
  Sex: Female
  Weight: 65.3 kg

DRUGS (9)
  1. FORTEO [Suspect]
     Indication: OSTEOPOROSIS
     Dates: start: 20040101, end: 20060101
  2. EPOGEN [Concomitant]
  3. FORTAZ [Concomitant]
  4. LASIX (FUROSEMIDE, FUROSEMIDE SODIUM) [Concomitant]
  5. KAY CIEL DURA-TABS [Concomitant]
  6. HYDROCHLOROTHIAZIDE [Concomitant]
  7. SYNTHROID [Concomitant]
  8. PRILOSEC [Concomitant]
  9. FORTEO [Concomitant]

REACTIONS (9)
  - ABASIA [None]
  - COMMINUTED FRACTURE [None]
  - CONTUSION [None]
  - FALL [None]
  - FEMUR FRACTURE [None]
  - HIP FRACTURE [None]
  - MOVEMENT DISORDER [None]
  - MUSCLE SPASMS [None]
  - RADIUS FRACTURE [None]
